FAERS Safety Report 21524399 (Version 3)
Quarter: 2022Q4

REPORT INFORMATION
  Report Type: Report from Study
  Country: MX (occurrence: MX)
  Receive Date: 20221029
  Receipt Date: 20221225
  Transmission Date: 20230113
  Serious: Yes (Other)
  Sender: FDA-Public Use
  Company Number: MX-NOVARTISPH-NVSC2022MX244022

PATIENT
  Sex: Female

DRUGS (1)
  1. TASIGNA [Suspect]
     Active Substance: NILOTINIB
     Indication: Chronic myeloid leukaemia
     Dosage: UNK
     Route: 048

REACTIONS (11)
  - Toxicity to various agents [Unknown]
  - Fear of death [Unknown]
  - Platelet count decreased [Unknown]
  - Mood altered [Unknown]
  - Gait disturbance [Unknown]
  - Somnolence [Unknown]
  - Crying [Unknown]
  - Dysstasia [Unknown]
  - Irritability [Unknown]
  - Anger [Unknown]
  - Musculoskeletal chest pain [Unknown]
